FAERS Safety Report 10051185 (Version 3)
Quarter: 2014Q2

REPORT INFORMATION
  Report Type: Spontaneous
  Country: US (occurrence: US)
  Receive Date: 20140401
  Receipt Date: 20140408
  Transmission Date: 20141212
  Serious: Yes (Other)
  Sender: FDA-Public Use
  Company Number: US-PFIZER INC-2014090310

PATIENT
  Age: 51 Year
  Sex: Female
  Weight: 79.37 kg

DRUGS (2)
  1. EFFEXOR XR [Suspect]
     Indication: DEPRESSION
     Dosage: 150MG IN THE MORNING AND 37.5MG IN THE EVENING
     Route: 048
     Dates: start: 201003
  2. ATENOLOL [Concomitant]
     Indication: HYPERTENSION
     Dosage: 100 MG, UNK

REACTIONS (12)
  - Cardiac flutter [Unknown]
  - Choking [Unknown]
  - Hypertension [Unknown]
  - Dyspnoea [Unknown]
  - Gait disturbance [Unknown]
  - Dizziness [Unknown]
  - Swelling [Unknown]
  - Cough [Unknown]
  - Feeling abnormal [Unknown]
  - Therapeutic response changed [Unknown]
  - Pre-existing condition improved [Unknown]
  - Peripheral swelling [Unknown]
